FAERS Safety Report 6023855-6 (Version None)
Quarter: 2008Q4

REPORT INFORMATION
  Report Type: 
  Country: None (occurrence: None)
  Receive Date: 20081230
  Receipt Date: 20081212
  Transmission Date: 20090506
  Serious: Yes (Life-Threatening, Hospitalization, Disabling, Other)
  Sender: FDA-Public Use
  Company Number: GB-PFIZER INC-2008027834

PATIENT

DRUGS (6)
  1. SUTENT [Suspect]
     Indication: RENAL CANCER METASTATIC
     Dosage: 50 MG, 1X/DAY
     Route: 048
     Dates: start: 20071106, end: 20071204
  2. SIMVASTATIN [Concomitant]
     Indication: BLOOD CHOLESTEROL INCREASED
     Dosage: 40 MG, UNK
     Route: 048
  3. MORPHINE SULFATE [Concomitant]
     Indication: PAIN
     Route: 048
     Dates: start: 20071201
  4. OMEPRAZOLE [Concomitant]
     Dosage: 20 MG, UNK
     Route: 048
  5. BENDROFLUMETHIAZIDE [Concomitant]
     Indication: HYPERTENSION
     Dosage: 2.5 MG, UNK
     Route: 048
  6. FELODIPINE [Concomitant]
     Indication: HYPERTENSION
     Dosage: 2.5 MG, UNK
     Route: 048

REACTIONS (3)
  - HAEMATEMESIS [None]
  - IDIOPATHIC THROMBOCYTOPENIC PURPURA [None]
  - THROMBOCYTOPENIA [None]
